FAERS Safety Report 7997207-3 (Version None)
Quarter: 2011Q4

REPORT INFORMATION
  Report Type: 
  Country: None (occurrence: None)
  Receive Date: 20111221
  Receipt Date: 20111219
  Transmission Date: 20120403
  Serious: Yes (Other)
  Sender: FDA-Public Use
  Company Number: US-JNJFOC-2007302102

PATIENT
  Sex: Male

DRUGS (2)
  1. SUDAFED 24 HOUR [Suspect]
     Route: 048
  2. SUDAFED 24 HOUR [Suspect]
     Indication: NASAL CONGESTION
     Dosage: DAILY DOSE TEXT: 4 TABLETS TWICE WITHIN 24 HOURS
     Route: 048
     Dates: start: 20070103, end: 20070104

REACTIONS (4)
  - DIZZINESS [None]
  - NAUSEA [None]
  - DYSGEUSIA [None]
  - OVERDOSE [None]
